FAERS Safety Report 21811418 (Version 3)
Quarter: 2023Q1

REPORT INFORMATION
  Report Type: Spontaneous
  Country: US (occurrence: US)
  Receive Date: 20230103
  Receipt Date: 20230113
  Transmission Date: 20230417
  Serious: Yes (Hospitalization, Other)
  Sender: FDA-Public Use
  Company Number: US-PFIZER INC-PV202200133695

PATIENT
  Age: 79 Year
  Sex: Female

DRUGS (12)
  1. NIFEDIPINE [Interacting]
     Active Substance: NIFEDIPINE
     Indication: Hypertension
     Dosage: 60 MG, DAILY
  2. NIRMATRELVIR\RITONAVIR [Interacting]
     Active Substance: NIRMATRELVIR\RITONAVIR
     Indication: COVID-19 treatment
     Dosage: 150 MG NIRMATRELVIR/100 MG RITONAVIR TWICE DAILY FOR 5 DAYS
  3. ASPIRIN [Concomitant]
     Active Substance: ASPIRIN
     Dosage: UNK
  4. CHOLECALCIFEROL [Concomitant]
     Active Substance: CHOLECALCIFEROL
     Dosage: UNK
  5. CLOPIDOGREL [Concomitant]
     Active Substance: CLOPIDOGREL BISULFATE
     Dosage: UNK
  6. COENZYME Q10 [Concomitant]
     Active Substance: DIETARY SUPPLEMENT\UBIDECARENONE
     Dosage: UNK
  7. CYANOCOBALAMIN [Concomitant]
     Active Substance: CYANOCOBALAMIN
     Dosage: UNK
  8. DULAGLUTIDE [Concomitant]
     Active Substance: DULAGLUTIDE
     Dosage: UNK
  9. FUROSEMIDE [Concomitant]
     Active Substance: FUROSEMIDE
     Dosage: UNK
  10. IRBESARTAN [Concomitant]
     Active Substance: IRBESARTAN
     Dosage: UNK
  11. NIACIN [Concomitant]
     Active Substance: NIACIN
     Dosage: UNK
  12. POTASSIUM CHLORIDE [Concomitant]
     Active Substance: POTASSIUM CHLORIDE
     Dosage: UNK

REACTIONS (3)
  - Drug interaction [Recovered/Resolved]
  - Chronic kidney disease [Recovered/Resolved]
  - Cardiac failure congestive [Recovered/Resolved]
